FAERS Safety Report 7703308-7 (Version None)
Quarter: 2011Q3

REPORT INFORMATION
  Report Type: 
  Country: None (occurrence: None)
  Receive Date: 20110823
  Receipt Date: 20110811
  Transmission Date: 20111222
  Serious: No
  Sender: FDA-Public Use
  Company Number: CA-ELI_LILLY_AND_COMPANY-CA201108003735

PATIENT
  Sex: Female

DRUGS (1)
  1. ZYPREXA [Suspect]
     Dosage: 5 MG, UNKNOWN

REACTIONS (9)
  - HAEMATOCRIT INCREASED [None]
  - BLOOD CHOLESTEROL INCREASED [None]
  - HAEMOGLOBIN INCREASED [None]
  - BLOOD TRIGLYCERIDES INCREASED [None]
  - TYPE 2 DIABETES MELLITUS [None]
  - ASPARTATE AMINOTRANSFERASE INCREASED [None]
  - HYPERGLYCAEMIA [None]
  - RED BLOOD CELL ABNORMALITY [None]
  - ALANINE AMINOTRANSFERASE INCREASED [None]
